FAERS Safety Report 21087156 (Version 1)
Quarter: 2022Q3

REPORT INFORMATION
  Report Type: Spontaneous
  Country: FR (occurrence: FR)
  Receive Date: 20220715
  Receipt Date: 20220715
  Transmission Date: 20221026
  Serious: Yes (Hospitalization, Other)
  Sender: FDA-Public Use
  Company Number: FR-MSNLABS-2022MSNLIT00793

PATIENT

DRUGS (4)
  1. CAPECITABINE [Suspect]
     Active Substance: CAPECITABINE
     Indication: Hypoglycaemia
     Route: 065
     Dates: start: 202006, end: 202012
  2. PASIREOTIDE [Suspect]
     Active Substance: PASIREOTIDE
     Indication: Hypoglycaemia
     Route: 065
     Dates: start: 201910, end: 202202
  3. TEMOZOLOMIDE [Suspect]
     Active Substance: TEMOZOLOMIDE
     Indication: Hypoglycaemia
     Route: 065
     Dates: start: 202006, end: 202012
  4. SUNITINIB [Concomitant]
     Active Substance: SUNITINIB
     Indication: Hypoglycaemia
     Route: 065
     Dates: start: 201910, end: 202006

REACTIONS (2)
  - Therapeutic product effect incomplete [Unknown]
  - Thrombocytopenia [Unknown]
